FAERS Safety Report 23390335 (Version 1)
Quarter: 2024Q1

REPORT INFORMATION
  Report Type: Spontaneous
  Country: FR (occurrence: FR)
  Receive Date: 20240111
  Receipt Date: 20240111
  Transmission Date: 20240409
  Serious: Yes (Hospitalization)
  Sender: FDA-Public Use
  Company Number: None

PATIENT
  Age: 40 Year
  Sex: Female
  Weight: 61 kg

DRUGS (6)
  1. ISONIAZID [Suspect]
     Active Substance: ISONIAZID
     Indication: Tuberculosis
     Dosage: UNK
     Dates: start: 20231125, end: 20231128
  2. ISONIAZID [Suspect]
     Active Substance: ISONIAZID
     Dosage: 6 DF, QD
     Route: 048
     Dates: start: 20231128, end: 20231209
  3. ETHAMBUTOL [Suspect]
     Active Substance: ETHAMBUTOL HYDROCHLORIDE
     Indication: Tuberculosis
     Dosage: UNK
     Route: 065
     Dates: start: 20231125, end: 20231128
  4. PYRAZINAMIDE [Suspect]
     Active Substance: PYRAZINAMIDE
     Indication: Tuberculosis
     Dosage: 6 DF, QD
     Route: 048
     Dates: start: 20231128, end: 20231209
  5. RIFAMPIN [Suspect]
     Active Substance: RIFAMPIN
     Indication: Tuberculosis
     Dosage: UNK
     Dates: start: 20231125, end: 20231128
  6. RIFAMPIN [Suspect]
     Active Substance: RIFAMPIN
     Dosage: 6 DF, QD
     Route: 048
     Dates: start: 20231128, end: 20231209

REACTIONS (2)
  - Lip oedema [Recovering/Resolving]
  - Urticaria [Recovering/Resolving]

NARRATIVE: CASE EVENT DATE: 20231209
